FAERS Safety Report 7001095-1 (Version None)
Quarter: 2010Q3

REPORT INFORMATION
  Report Type: 
  Country: None (occurrence: None)
  Receive Date: 20100920
  Receipt Date: 20100913
  Transmission Date: 20110219
  Serious: Yes (Other)
  Sender: FDA-Public Use
  Company Number: GB-ROCHE-715124

PATIENT
  Sex: Female

DRUGS (4)
  1. COPEGUS [Suspect]
     Indication: HEPATITIS C
     Route: 048
     Dates: start: 20100311, end: 20100519
  2. COPEGUS [Suspect]
     Route: 048
  3. PEGASYS [Concomitant]
     Indication: PRODUCT USED FOR UNKNOWN INDICATION
     Route: 065
     Dates: start: 20100311, end: 20100519
  4. PEGASYS [Concomitant]
     Route: 065

REACTIONS (1)
  - ABORTION SPONTANEOUS [None]
